FAERS Safety Report 8604373-5 (Version None)
Quarter: 2012Q3

REPORT INFORMATION
  Report Type: 
  Country: None (occurrence: None)
  Receive Date: 20120820
  Receipt Date: 20120809
  Transmission Date: 20120928
  Serious: Yes (Hospitalization)
  Sender: FDA-Public Use
  Company Number: US-BAYER-2012-082385

PATIENT
  Age: 33 Year
  Sex: Female
  Weight: 62.14 kg

DRUGS (4)
  1. ZANAFLEX [Concomitant]
     Dosage: 4 MG, UNK
     Route: 048
     Dates: start: 20120106
  2. YASMIN [Suspect]
     Dosage: UNK
  3. MOTRIN [Concomitant]
     Dosage: 600 MG, UNK
     Route: 048
     Dates: start: 20120106
  4. TORADOL [Concomitant]
     Dosage: 60 MG, UNK
     Route: 030
     Dates: start: 20120106

REACTIONS (1)
  - PULMONARY EMBOLISM [None]
